FAERS Safety Report 16855934 (Version 1)
Quarter: 2019Q3

REPORT INFORMATION
  Report Type: Spontaneous
  Country: CA (occurrence: CA)
  Receive Date: 20190926
  Receipt Date: 20190926
  Transmission Date: 20191005
  Serious: Yes (Hospitalization)
  Sender: FDA-Public Use
  Company Number: PHHY2019CA220936

PATIENT
  Age: 59 Year
  Sex: Male

DRUGS (1)
  1. HEPARIN [Suspect]
     Active Substance: HEPARIN SODIUM
     Indication: THROMBOSIS PROPHYLAXIS
     Dosage: UNK UNK, BID (5000 UNITS)
     Route: 058

REACTIONS (5)
  - Pyrexia [Recovered/Resolved]
  - Infection [Recovered/Resolved]
  - Hypotension [Recovered/Resolved]
  - Heparin-induced thrombocytopenia [Unknown]
  - Platelet count decreased [Recovered/Resolved]
